FAERS Safety Report 5552645-3 (Version None)
Quarter: 2007Q4

REPORT INFORMATION
  Report Type: 
  Country: None (occurrence: None)
  Receive Date: 20071204
  Receipt Date: 20071124
  Transmission Date: 20080405
  Serious: Yes (Other)
  Sender: FDA-Public Use
  Company Number: CHPA2007US12888

PATIENT
  Age: 22 Year
  Sex: Male

DRUGS (1)
  1. EX-LAX REG STR CHOCOLATED LAX PCS SEN (NCH)(SENNA GLYCOSIDES (CA SALTS [Suspect]
     Dosage: 3-4 BOXES, 18 PILLS IN EACH, IN 15 MINUTES, ORAL
     Route: 048
     Dates: start: 20071124, end: 20071124

REACTIONS (3)
  - ACCIDENTAL OVERDOSE [None]
  - DIARRHOEA [None]
  - MEDICATION ERROR [None]
